FAERS Safety Report 18340908 (Version 1)
Quarter: 2020Q4

REPORT INFORMATION
  Report Type: Spontaneous
  Country: US (occurrence: US)
  Receive Date: 20201003
  Receipt Date: 20201003
  Transmission Date: 20210113
  Serious: Yes (Death, Other)
  Sender: FDA-Public Use
  Company Number: US-LUPIN PHARMACEUTICALS INC.-2020-06679

PATIENT

DRUGS (7)
  1. FENTANYL. [Suspect]
     Active Substance: FENTANYL
     Indication: INDUCTION OF ANAESTHESIA
     Dosage: 15 MICROGRAM, UNK
     Route: 064
  2. PHENYLEPHRINE [Suspect]
     Active Substance: PHENYLEPHRINE HYDROCHLORIDE
     Dosage: UNK (BOLUSES)
     Route: 064
  3. MORPHINE [Suspect]
     Active Substance: MORPHINE
     Dosage: 150 MICROGRAM, UNK
     Route: 064
  4. CEFAZOLIN [Suspect]
     Active Substance: CEFAZOLIN
     Indication: ANTIBIOTIC PROPHYLAXIS
     Dosage: 2 GRAM, UNK
     Route: 064
  5. BUPIVACAINE. [Suspect]
     Active Substance: BUPIVACAINE
     Indication: INDUCTION OF ANAESTHESIA
     Dosage: 0.75 PERCENT (HYPERBARIC) (COMBINED SPINAL-EPIDURAL)
     Route: 064
  6. EPHEDRINE. [Suspect]
     Active Substance: EPHEDRINE
     Indication: BLOOD PRESSURE MEASUREMENT
     Dosage: UNK, BOLUSES
     Route: 064
  7. PHENYLEPHRINE [Suspect]
     Active Substance: PHENYLEPHRINE HYDROCHLORIDE
     Indication: BLOOD PRESSURE ABNORMAL
     Dosage: 50 MICROGRAM PER MINUTE
     Route: 064

REACTIONS (3)
  - Hydrops foetalis [Unknown]
  - Foetal death [Fatal]
  - Foetal exposure during pregnancy [Unknown]
